FAERS Safety Report 6858018-5 (Version None)
Quarter: 2010Q3

REPORT INFORMATION
  Report Type: 
  Country: None (occurrence: None)
  Receive Date: 20100719
  Receipt Date: 20100719
  Transmission Date: 20110219
  Serious: Yes (Other)
  Sender: FDA-Public Use
  Company Number: None

PATIENT
  Sex: Male
  Weight: 127.0072 kg

DRUGS (2)
  1. FENTANYL-100 [Suspect]
     Indication: ARTHRALGIA
     Dosage: 1 PATCH EVERY 72 HRS TRANSDERM
     Route: 062
     Dates: start: 20100620, end: 20100704
  2. FENTANYL-100 [Suspect]
     Indication: BACK PAIN
     Dosage: 1 PATCH EVERY 72 HRS TRANSDERM
     Route: 062
     Dates: start: 20100620, end: 20100704

REACTIONS (3)
  - DRUG EFFECT DECREASED [None]
  - PRODUCT MEASURED POTENCY ISSUE [None]
  - WITHDRAWAL SYNDROME [None]
